FAERS Safety Report 9225498 (Version 1)
Quarter: 2013Q1

REPORT INFORMATION
  Report Type: Spontaneous
  Country: US (occurrence: None)
  Receive Date: 20120912
  Receipt Date: 20120912
  Transmission Date: 20140127
  Serious: No
  Sender: FDA-Public Use
  Company Number: 2012SP002825

PATIENT
  Age: 44 Year
  Sex: Male

DRUGS (3)
  1. VICTRELIS [Suspect]
     Indication: HEPATITIS C
  2. RIBAVARIN [Suspect]
     Indication: HEPATITIS C
  3. INTERFERON NOS [Suspect]
     Indication: HEPATITIS C

REACTIONS (1)
  - Memory impairment [None]
